FAERS Safety Report 10203706 (Version 1)
Quarter: 2014Q2

REPORT INFORMATION
  Report Type: Report from Study
  Country: CA (occurrence: CA)
  Receive Date: 20140529
  Receipt Date: 20140529
  Transmission Date: 20141212
  Serious: Yes (Hospitalization, Other)
  Sender: FDA-Public Use
  Company Number: CA-JNJFOC-20140515205

PATIENT
  Age: 58 Year
  Sex: Female

DRUGS (12)
  1. REMICADE [Suspect]
     Indication: CROHN^S DISEASE
     Route: 042
     Dates: end: 2014
  2. REMICADE [Suspect]
     Indication: CROHN^S DISEASE
     Route: 042
     Dates: start: 2014
  3. METHOTREXATE [Concomitant]
     Dosage: 2RYP5 MG
     Route: 058
  4. VIT C [Concomitant]
     Route: 065
  5. FOLIC ACID [Concomitant]
     Route: 065
  6. ELIQUIS [Concomitant]
     Route: 065
  7. ESTROGEN [Concomitant]
     Route: 065
  8. TRAMADOL [Concomitant]
     Route: 065
  9. AMITRIPTYLINE [Concomitant]
     Route: 065
  10. GABAPENTIN [Concomitant]
     Route: 065
  11. CLONAZEPAM [Concomitant]
     Route: 065
  12. PANTOLOC [Concomitant]
     Route: 065

REACTIONS (4)
  - Intestinal stenosis [Unknown]
  - Pancreatitis [Unknown]
  - Volvulus [Unknown]
  - Intestinal obstruction [Unknown]
